FAERS Safety Report 22344674 (Version 1)
Quarter: 2023Q2

REPORT INFORMATION
  Report Type: Spontaneous
  Country: AU (occurrence: AU)
  Receive Date: 20230519
  Receipt Date: 20230519
  Transmission Date: 20230722
  Serious: No
  Sender: FDA-Public Use
  Company Number: AU-PFIZER INC-202300150878

PATIENT
  Sex: Female

DRUGS (1)
  1. FRAGMIN [Suspect]
     Active Substance: DALTEPARIN SODIUM
     Indication: Therapeutic procedure
     Dosage: 5000 IU

REACTIONS (3)
  - Injection site pain [Recovered/Resolved]
  - Poor quality device used [Unknown]
  - Needle issue [Unknown]
